FAERS Safety Report 4760164-7 (Version None)
Quarter: 2005Q3

REPORT INFORMATION
  Report Type: 
  Country: None (occurrence: None)
  Receive Date: 20050830
  Receipt Date: 20050830
  Transmission Date: 20060218
  Serious: Yes (Other)
  Sender: FDA-Public Use
  Company Number: None

PATIENT
  Age: 37 Year
  Sex: Female
  Weight: 58.9676 kg

DRUGS (6)
  1. OXYCODONE 20 MG (ENCO-POSSIBLE MANUFACTURER) [Suspect]
     Indication: ARTHRALGIA
     Dosage: EVERY 8 HRS
     Dates: start: 20050718, end: 20050728
  2. ZOLOFT [Concomitant]
  3. WELLBUTRIN XL [Concomitant]
     Indication: BACK PAIN
  4. VALIUM [Concomitant]
  5. AMBIEN [Concomitant]
  6. TORADOL [Concomitant]

REACTIONS (9)
  - ARTHRALGIA [None]
  - DRUG INEFFECTIVE [None]
  - FEELING ABNORMAL [None]
  - MALAISE [None]
  - MYALGIA [None]
  - NAUSEA [None]
  - PHARMACEUTICAL PRODUCT COMPLAINT [None]
  - PRURITUS [None]
  - VOMITING [None]
